FAERS Safety Report 9922871 (Version 1)
Quarter: 2014Q1

REPORT INFORMATION
  Report Type: Report from Study
  Country: US (occurrence: US)
  Receive Date: 20140225
  Receipt Date: 20140225
  Transmission Date: 20141002
  Serious: No
  Sender: FDA-Public Use
  Company Number: US-ABBVIE-13P-163-1175262-00

PATIENT
  Sex: Male

DRUGS (5)
  1. ANDROGEL [Suspect]
     Indication: BLOOD TESTOSTERONE DECREASED
     Dosage: FOUR PUMPS DAILY
     Route: 061
     Dates: start: 201210, end: 201305
  2. ANDROGEL [Suspect]
     Dosage: THREE PUMPS DAILY
     Route: 061
     Dates: start: 201305, end: 20131125
  3. ANDROGEL [Suspect]
     Dosage: FOUR PUMPS DAILY
     Route: 061
     Dates: start: 20131126
  4. LEVOTHYROXINE [Concomitant]
     Indication: PRODUCT USED FOR UNKNOWN INDICATION
  5. DICLOFENAC [Concomitant]
     Indication: PRODUCT USED FOR UNKNOWN INDICATION

REACTIONS (4)
  - Drug prescribing error [Unknown]
  - Blood testosterone decreased [Not Recovered/Not Resolved]
  - Food craving [Not Recovered/Not Resolved]
  - Unevaluable event [Not Recovered/Not Resolved]
